FAERS Safety Report 6774730-0 (Version None)
Quarter: 2010Q2

REPORT INFORMATION
  Report Type: 
  Country: None (occurrence: None)
  Receive Date: 20100616
  Receipt Date: 20100616
  Transmission Date: 20101027
  Serious: Yes (Other)
  Sender: FDA-Public Use
  Company Number: None

PATIENT
  Age: 72 Year
  Sex: Female
  Weight: 63.5036 kg

DRUGS (2)
  1. SIMVASTATIN [Suspect]
     Indication: BLOOD CHOLESTEROL INCREASED
     Dosage: 1 PILL 1 TIME A DAY PO
     Route: 048
     Dates: start: 20090203, end: 20100301
  2. AMLODIPINE [Suspect]
     Indication: HYPERTENSION
     Dosage: 1 PILL 1 TIME A DAY PO
     Route: 048
     Dates: start: 20090203, end: 20100613

REACTIONS (1)
  - ALOPECIA [None]
